FAERS Safety Report 7902599-7 (Version None)
Quarter: 2011Q4

REPORT INFORMATION
  Report Type: 
  Country: None (occurrence: None)
  Receive Date: 20111108
  Receipt Date: 20111024
  Transmission Date: 20120403
  Serious: Yes (Hospitalization)
  Sender: FDA-Public Use
  Company Number: DK-WATSON-2011-18021

PATIENT
  Age: 26 Year
  Sex: Male

DRUGS (6)
  1. EPITESTOSTERONE [Suspect]
     Indication: PRODUCT USED FOR UNKNOWN INDICATION
     Route: 030
  2. PARAFFIN [Suspect]
     Indication: PRODUCT USED FOR UNKNOWN INDICATION
  3. TESTOSTERONE CYPIONATE [Suspect]
     Indication: PRODUCT USED FOR UNKNOWN INDICATION
     Route: 030
  4. EPOGEN [Suspect]
     Indication: PRODUCT USED FOR UNKNOWN INDICATION
     Route: 030
  5. DECA                               /00000604/ [Suspect]
     Indication: PRODUCT USED FOR UNKNOWN INDICATION
  6. OXYMETHOLONE [Suspect]
     Indication: PRODUCT USED FOR UNKNOWN INDICATION
     Route: 030

REACTIONS (25)
  - ASCITES [None]
  - DRUG ABUSE [None]
  - NOCTURIA [None]
  - PLEURAL EFFUSION [None]
  - GASTRITIS [None]
  - ILEUS PARALYTIC [None]
  - LIPID METABOLISM DISORDER [None]
  - GASTROOESOPHAGEAL REFLUX DISEASE [None]
  - CARDIAC HYPERTROPHY [None]
  - SKIN INFECTION [None]
  - CARDIOMYOPATHY [None]
  - PANCREATIC DISORDER [None]
  - SKIN NECROSIS [None]
  - METABOLIC DISORDER [None]
  - HYPERCALCAEMIA [None]
  - ABDOMINAL PAIN [None]
  - GASTRITIS HAEMORRHAGIC [None]
  - RENAL FAILURE [None]
  - FIBRINOLYSIS INCREASED [None]
  - LEUKOCYTOSIS [None]
  - ANURIA [None]
  - HYPERTENSIVE CRISIS [None]
  - POLYURIA [None]
  - LACTIC ACIDOSIS [None]
  - BLOOD LACTATE DEHYDROGENASE INCREASED [None]
